FAERS Safety Report 6390609-0 (Version None)
Quarter: 2009Q4

REPORT INFORMATION
  Report Type: 
  Country: None (occurrence: None)
  Receive Date: 20091003
  Receipt Date: 20090922
  Transmission Date: 20100525
  Serious: Yes (Death, Life-Threatening)
  Sender: FDA-Public Use
  Company Number: 2008EU002682

PATIENT
  Age: 47 Year
  Sex: Female

DRUGS (2)
  1. PROTOPIC [Suspect]
     Dosage: % /D, TOPICAL
     Route: 061
     Dates: start: 20050228, end: 20050330
  2. NEORAL [Concomitant]

REACTIONS (4)
  - MYCOSIS FUNGOIDES [None]
  - NO THERAPEUTIC RESPONSE [None]
  - SEPTIC SHOCK [None]
  - T-CELL LYMPHOMA [None]
